FAERS Safety Report 9718702 (Version 2)
Quarter: 2013Q4

REPORT INFORMATION
  Report Type: Not Available
  Country: US (occurrence: US)
  Receive Date: 20131125
  Receipt Date: 20131125
  Transmission Date: 20140711
  Serious: No
  Sender: FDA-Public Use
  Company Number: US-H. LUNDBECK A/S-DKLU1092561

PATIENT
  Sex: Female

DRUGS (8)
  1. ONFI [Suspect]
     Indication: CONVULSION
     Route: 048
     Dates: start: 20130709
  2. ONFI [Suspect]
     Route: 048
  3. ONFI [Suspect]
     Route: 048
     Dates: end: 20130712
  4. ONFI [Suspect]
     Dates: start: 20130727
  5. ONFI [Suspect]
  6. DEPAKOTE ER [Suspect]
     Indication: PRODUCT USED FOR UNKNOWN INDICATION
     Dates: end: 20130723
  7. PHENOBARBITAL [Concomitant]
     Indication: PRODUCT USED FOR UNKNOWN INDICATION
  8. TOPIRAMATE [Concomitant]
     Indication: PRODUCT USED FOR UNKNOWN INDICATION

REACTIONS (6)
  - Weight bearing difficulty [Recovered/Resolved]
  - Hypopnoea [Recovered/Resolved]
  - Blood alkaline phosphatase increased [Not Recovered/Not Resolved]
  - Eating disorder [Recovered/Resolved]
  - Drooling [Recovered/Resolved]
  - Somnolence [Recovered/Resolved]
